FAERS Safety Report 7043461 (Version 2)
Quarter: 2014Q3

REPORT INFORMATION
  Report Type: Spontaneous
  Country: US (occurrence: None)
  Receive Date: 20090626
  Receipt Date: 20140926
  Transmission Date: 20150326
  Serious: Yes (Death, Hospitalization, Other)
  Sender: FDA-Public Use
  Company Number: 2009S1004864

PATIENT
  Age: 75 Year
  Sex: Female

DRUGS (15)
  1. CRESTOR (ROSUVASATIN CALCIUM) [Concomitant]
  2. FUROSEMIDE (FUROSEMIDE) [Concomitant]
     Active Substance: FUROSEMIDE
  3. HYZAAR (HYDROCHLOROTHIAIZIDE, LOSARTAM POTASSIUM) [Concomitant]
  4. LOSARTAN (LOSARTAN) [Concomitant]
     Active Substance: LOSARTAN
  5. ASPIRIN (ACETYLSALICYLIC ACID) [Concomitant]
     Active Substance: ASPIRIN
  6. PRAVASTATIN [Concomitant]
     Active Substance: PRAVASTATIN\PRAVASTATIN SODIUM
  7. LORATADINE (LORATADINE) (LORATADINE) [Concomitant]
     Active Substance: LORATADINE
  8. PHENYLEPHRINE [Concomitant]
     Active Substance: PHENYLEPHRINE\PHENYLEPHRINE HYDROCHLORIDE
  9. PHOSPHO-SODA [Suspect]
     Active Substance: SODIUM PHOSPHATE, DIBASIC\SODIUM PHOSPHATE, MONOBASIC
     Indication: SURGERY
     Dosage: 90 ML; TOTAL; PO
     Route: 048
     Dates: start: 20070426, end: 20070426
  10. PHOSPHO-SODA [Suspect]
     Active Substance: SODIUM PHOSPHATE, DIBASIC\SODIUM PHOSPHATE, MONOBASIC
     Indication: COLECTOMY
     Dosage: 90 ML; TOTAL; PO
     Route: 048
     Dates: start: 20070426, end: 20070426
  11. PROMETHAZINE (PROMEHAZINE) [Concomitant]
  12. ALLEGRA (FEXOFENADINE HYDROCHLORIDE) [Concomitant]
  13. GLUCOPHAGE [Concomitant]
     Active Substance: METFORMIN HYDROCHLORIDE
  14. FAMOTIDINE (FAMOTIDINE) [Concomitant]
     Active Substance: FAMOTIDINE
  15. LABETALOL [Concomitant]
     Active Substance: LABETALOL\LABETALOL HYDROCHLORIDE

REACTIONS (14)
  - Renal failure acute [None]
  - Hyperphosphataemia [None]
  - Renal failure chronic [None]
  - Renal tubular necrosis [None]
  - Brain injury [None]
  - Vomiting [None]
  - Nausea [None]
  - Cardio-respiratory arrest [None]
  - Renal transplant [None]
  - Hyperparathyroidism secondary [None]
  - Nephrogenic anaemia [None]
  - Hypoxia [None]
  - Procedural hypotension [None]
  - Haemodialysis [None]

NARRATIVE: CASE EVENT DATE: 20070427
